FAERS Safety Report 10264768 (Version 1)
Quarter: 2014Q2

REPORT INFORMATION
  Report Type: Spontaneous
  Country: US (occurrence: US)
  Receive Date: 20140627
  Receipt Date: 20140627
  Transmission Date: 20141212
  Serious: No
  Sender: FDA-Public Use
  Company Number: US-SHIRE-US201403393

PATIENT
  Sex: Male
  Weight: 77.98 kg

DRUGS (2)
  1. LIALDA [Suspect]
     Indication: COLITIS ULCERATIVE
     Dosage: UNK, UNKNOWN
     Route: 048
     Dates: start: 201206, end: 2012
  2. LIALDA [Suspect]
     Dosage: 2.4 G, 2X/DAY:BID (TWO 1.2 G TABLETS IN THE MORNING AND TWO 1.2 TABLETS IN THE EVENING)
     Route: 048
     Dates: start: 201402

REACTIONS (3)
  - Alopecia [Recovered/Resolved]
  - Inappropriate schedule of drug administration [Not Recovered/Not Resolved]
  - Acne [Not Recovered/Not Resolved]
